FAERS Safety Report 7323431-9 (Version None)
Quarter: 2011Q1

REPORT INFORMATION
  Report Type: 
  Country: None (occurrence: None)
  Receive Date: 20110301
  Receipt Date: 20110215
  Transmission Date: 20110831
  Serious: Yes (Death, Hospitalization)
  Sender: FDA-Public Use
  Company Number: DE-ALEXION-A201001229

PATIENT
  Sex: Male

DRUGS (7)
  1. TORASEMID [Concomitant]
     Indication: OEDEMA PERIPHERAL
     Dosage: 2X10MG
     Route: 048
     Dates: start: 20100401
  2. CEFUROXIM                          /00454602/ [Concomitant]
     Indication: EPIDIDYMITIS
     Dosage: 2X500 MG
     Route: 048
     Dates: start: 20100723, end: 20100805
  3. PREDNISOLONE [Concomitant]
     Indication: ANAEMIA HAEMOLYTIC AUTOIMMUNE
     Dosage: UNK
     Dates: start: 20100501
  4. SOLIRIS [Suspect]
     Indication: PAROXYSMAL NOCTURNAL HAEMOGLOBINURIA
     Dosage: 600 MG, UNK
     Route: 042
     Dates: start: 20090806
  5. DECORTIN [Concomitant]
     Indication: ANAEMIA HAEMOLYTIC AUTOIMMUNE
     Dosage: 20 MG, UNK
     Route: 048
     Dates: start: 20090601
  6. EXJADE [Concomitant]
     Indication: HAEMOCHROMATOSIS
     Dosage: 2X500 MG
     Route: 048
     Dates: start: 20090601
  7. METOPROLOL [Concomitant]
     Indication: HYPERTENSION
     Dosage: 100 MG, UNK
     Route: 048

REACTIONS (3)
  - MULTI-ORGAN FAILURE [None]
  - ERYSIPELAS [None]
  - SEPTIC SHOCK [None]
